FAERS Safety Report 20233105 (Version 1)
Quarter: 2021Q4

REPORT INFORMATION
  Report Type: Spontaneous
  Country: US (occurrence: None)
  Receive Date: 20211226
  Receipt Date: 20211226
  Transmission Date: 20220303
  Serious: Yes (Disabling, Other)
  Sender: FDA-Public Use
  Company Number: None

PATIENT
  Age: 21 Year
  Sex: Female
  Weight: 72.57 kg

DRUGS (2)
  1. NEXPLANON [Suspect]
     Active Substance: ETONOGESTREL
  2. VITAMINS [Suspect]
     Active Substance: VITAMINS

REACTIONS (3)
  - Breast cancer [None]
  - Heavy menstrual bleeding [None]
  - Cardiac disorder [None]

NARRATIVE: CASE EVENT DATE: 20210815
